FAERS Safety Report 24538349 (Version 2)
Quarter: 2024Q4

REPORT INFORMATION
  Report Type: Spontaneous
  Country: US (occurrence: US)
  Receive Date: 20241023
  Receipt Date: 20241028
  Transmission Date: 20250115
  Serious: Yes (Other)
  Sender: ROCHE
  Company Number: US-ROCHE-10000110483

PATIENT
  Sex: Male

DRUGS (6)
  1. ACTEMRA ACTPEN [Suspect]
     Active Substance: TOCILIZUMAB
     Indication: Giant cell arteritis
     Route: 058
  2. FAMOTIDINE [Concomitant]
     Active Substance: FAMOTIDINE
  3. FOLIC ACID [Concomitant]
     Active Substance: FOLIC ACID
  4. Lisinopril-H [Concomitant]
     Dosage: 10-12.5M
  5. METHOTREXATE [Concomitant]
     Active Substance: METHOTREXATE
  6. TAMSULOSIN [Concomitant]
     Active Substance: TAMSULOSIN

REACTIONS (1)
  - Carpal tunnel syndrome [Not Recovered/Not Resolved]
